FAERS Safety Report 7047011-8 (Version None)
Quarter: 2010Q4

REPORT INFORMATION
  Report Type: 
  Country: None (occurrence: None)
  Receive Date: 20101012
  Receipt Date: 20101001
  Transmission Date: 20110411
  Serious: Yes (Hospitalization)
  Sender: FDA-Public Use
  Company Number: TCI2010A04258

PATIENT
  Age: 63 Year
  Sex: Male

DRUGS (5)
  1. ACTOS [Suspect]
     Indication: TYPE 2 DIABETES MELLITUS
     Dosage: 30 MG (30 MG, 1 D) PER ORAL
     Route: 048
     Dates: start: 20091110, end: 20100126
  2. ALPHA GLUCOSIDASE INHIBITORS [Concomitant]
  3. SULFONAMIDES, UREA DERIVATIVES [Concomitant]
  4. CALCIUM CHANNEL BLOCKERS [Concomitant]
  5. ANGIOTENSIN II ANTAGONISTS [Concomitant]

REACTIONS (1)
  - ACUTE MYOCARDIAL INFARCTION [None]
